FAERS Safety Report 7380438-3 (Version None)
Quarter: 2011Q1

REPORT INFORMATION
  Report Type: 
  Country: None (occurrence: None)
  Receive Date: 20110329
  Receipt Date: 20110318
  Transmission Date: 20110831
  Serious: Yes (Death)
  Sender: FDA-Public Use
  Company Number: MX-SANOFI-AVENTIS-2011SA016562

PATIENT
  Age: 58 Year
  Sex: Male

DRUGS (2)
  1. INSULIN GLARGINE [Suspect]
     Indication: TYPE 2 DIABETES MELLITUS
     Route: 058
     Dates: start: 20000101, end: 20110202
  2. INSULIN [Concomitant]
     Indication: TYPE 2 DIABETES MELLITUS
     Route: 058
     Dates: start: 20000101, end: 20110202

REACTIONS (4)
  - BLOOD GLUCOSE FLUCTUATION [None]
  - RENAL FAILURE CHRONIC [None]
  - DIALYSIS [None]
  - MYOCARDIAL INFARCTION [None]
